FAERS Safety Report 10896182 (Version 1)
Quarter: 2015Q1

REPORT INFORMATION
  Report Type: Spontaneous
  Country: US (occurrence: US)
  Receive Date: 20150309
  Receipt Date: 20150309
  Transmission Date: 20150721
  Serious: No
  Sender: FDA-Public Use
  Company Number: US-ASTRAZENECA-2015SE18267

PATIENT
  Age: 61 Year
  Sex: Female
  Weight: 79.4 kg

DRUGS (7)
  1. NEXIUM [Suspect]
     Active Substance: ESOMEPRAZOLE MAGNESIUM
     Indication: GASTROOESOPHAGEAL REFLUX DISEASE
     Route: 048
     Dates: start: 200103
  2. FIORICET [Concomitant]
     Active Substance: ACETAMINOPHEN\BUTALBITAL\CAFFEINE
     Indication: MIGRAINE
     Route: 048
  3. TOPROL XL [Suspect]
     Active Substance: METOPROLOL SUCCINATE
     Indication: BLOOD PRESSURE ABNORMAL
     Route: 048
     Dates: start: 2007
  4. BABY ASPIRIN [Concomitant]
     Active Substance: ASPIRIN
     Indication: CEREBROVASCULAR ACCIDENT
     Route: 048
     Dates: start: 2007
  5. PEPCID [Concomitant]
     Active Substance: FAMOTIDINE
     Indication: ULCER
     Route: 048
     Dates: start: 1989
  6. PEPCID [Concomitant]
     Active Substance: FAMOTIDINE
     Indication: GASTRITIS
     Route: 048
     Dates: start: 1989
  7. SYNTHROID [Concomitant]
     Active Substance: LEVOTHYROXINE SODIUM
     Indication: HYPOTHYROIDISM
     Route: 048
     Dates: start: 2007

REACTIONS (7)
  - Oesophagitis [Unknown]
  - Hypertension [Unknown]
  - Dyspepsia [Not Recovered/Not Resolved]
  - Drug effect decreased [Unknown]
  - Drug dose omission [Unknown]
  - Gastritis [Unknown]
  - Autoimmune thyroiditis [Unknown]

NARRATIVE: CASE EVENT DATE: 2007
